FAERS Safety Report 6530493 (Version 2)
Quarter: 2013Q1

REPORT INFORMATION
  Report Type: Spontaneous
  Country: GB (occurrence: None)
  Receive Date: 20080111
  Receipt Date: 20130312
  Transmission Date: 20140127
  Serious: Yes (Congenital Anomaly)
  Sender: FDA-Public Use
  Company Number: B0461185A

PATIENT
  Sex: Female
  Weight: 2.81 kg

DRUGS (4)
  1. LAMOTRIGINE [Suspect]
     Indication: EPILEPSY
     Dosage: 200 MG / PER DAY / TRANSPLACENTARY
     Route: 064
  2. CLOBAZAM [Suspect]
     Indication: EPILEPSY
     Dosage: 10 MG / PER DAY / TRANSPLACENTARY
     Route: 064
  3. LEVETIRACETAM [Suspect]
     Indication: EPILEPSY
     Dosage: 1000 MG / PER DAY / TRANSPLACENTARY
     Route: 064
  4. VALPROATE SODIUM [Suspect]
     Indication: EPILEPSY
     Dosage: 1200 MG / PER DAY / TRANSPLACENTARY
     Route: 065

REACTIONS (2)
  - Spina bifida [None]
  - Maternal exposure during pregnancy [None]
